FAERS Safety Report 15776188 (Version 1)
Quarter: 2018Q4

REPORT INFORMATION
  Report Type: Report from Study
  Country: US (occurrence: US)
  Receive Date: 20181231
  Receipt Date: 20181231
  Transmission Date: 20190205
  Serious: No
  Sender: FDA-Public Use
  Company Number: US-IPSEN BIOPHARMACEUTICALS, INC.-2018-16861

PATIENT
  Age: 4 Year
  Sex: Male
  Weight: 16.8 kg

DRUGS (3)
  1. DYSPORT [Suspect]
     Active Substance: ABOBOTULINUMTOXINA
     Indication: OFF LABEL USE
     Dates: start: 20181219, end: 20181219
  2. DYSPORT [Suspect]
     Active Substance: ABOBOTULINUMTOXINA
     Indication: MUSCLE SPASTICITY
     Dosage: 450 IU
     Dates: start: 20180907, end: 20180907
  3. BACLOFEN. [Concomitant]
     Active Substance: BACLOFEN
     Indication: MUSCLE SPASTICITY
     Dosage: TAKE 5 MG BID AND 10 MG
     Route: 048
     Dates: start: 20160325

REACTIONS (4)
  - Off label use [Unknown]
  - Hemiparesis [Recovered/Resolved]
  - Foot deformity [Recovered/Resolved]
  - Joint instability [Recovered/Resolved]

NARRATIVE: CASE EVENT DATE: 20180914
